FAERS Safety Report 8987969 (Version 1)
Quarter: 2012Q4

REPORT INFORMATION
  Report Type: 
  Country: US (occurrence: US)
  Receive Date: 20121227
  Receipt Date: 20121227
  Transmission Date: 20130627
  Serious: Yes (Other)
  Sender: FDA-Public Use
  Company Number: US-JNJFOC-20121211002

PATIENT
  Sex: Male
  Weight: 61.24 kg

DRUGS (11)
  1. UNSPECIFIED FENTANYL TRANSDERMAL SYSTEM [Suspect]
     Indication: PAIN
     Route: 062
     Dates: start: 2005, end: 2005
  2. DURAGESIC [Suspect]
     Indication: PAIN
     Route: 062
     Dates: start: 2005
  3. DURAGESIC [Suspect]
     Indication: PAIN
     Route: 062
  4. DURAGESIC [Suspect]
     Indication: PAIN
     Dosage: as needed
     Route: 062
  5. CETIRIZINE [Concomitant]
     Indication: ANTIALLERGIC THERAPY
     Route: 048
  6. NORTRIPTYLINE [Concomitant]
     Indication: BACK PAIN
     Route: 048
  7. SINGULAIR [Concomitant]
     Route: 048
  8. SYMBICORT [Concomitant]
     Indication: CHRONIC OBSTRUCTIVE PULMONARY DISEASE
     Route: 055
  9. SYMBICORT [Concomitant]
     Indication: LUNG DISORDER
     Route: 055
  10. COMBIVENT [Concomitant]
     Indication: CHRONIC OBSTRUCTIVE PULMONARY DISEASE
     Route: 048
  11. ZETIA [Concomitant]
     Indication: BLOOD CHOLESTEROL
     Route: 048

REACTIONS (8)
  - Heart valve incompetence [Not Recovered/Not Resolved]
  - Incorrect drug administration rate [Recovered/Resolved]
  - Therapeutic response decreased [Recovered/Resolved]
  - Pain [Recovered/Resolved]
  - Drug effect incomplete [Not Recovered/Not Resolved]
  - Hypertension [Not Recovered/Not Resolved]
  - Tachycardia [Not Recovered/Not Resolved]
  - Inappropriate schedule of drug administration [Unknown]
